FAERS Safety Report 6498915-6 (Version None)
Quarter: 2009Q4

REPORT INFORMATION
  Report Type: 
  Country: None (occurrence: None)
  Receive Date: 20091215
  Receipt Date: 20091130
  Transmission Date: 20100525
  Serious: Yes (Hospitalization)
  Sender: FDA-Public Use
  Company Number: US-JNJFOC-20091200393

PATIENT
  Sex: Male
  Weight: 89.81 kg

DRUGS (16)
  1. DURAGESIC-100 [Suspect]
     Indication: BACK PAIN
     Route: 062
     Dates: start: 20040101, end: 20050101
  2. SANDOZ FENTANYL TRANSDERMAL SYSTEM [Suspect]
     Indication: BACK PAIN
     Route: 062
     Dates: start: 20050101
  3. ISOSORBIDE [Concomitant]
     Route: 048
  4. COZAAR [Concomitant]
     Indication: CARDIAC DISORDER
     Route: 048
  5. PROVIGIL [Concomitant]
     Indication: SLEEP DISORDER
     Route: 048
  6. NEXIUM [Concomitant]
     Indication: DYSPEPSIA
     Route: 048
  7. K-DUR [Concomitant]
     Indication: MINERAL SUPPLEMENTATION
     Route: 048
  8. CELEXA [Concomitant]
     Indication: CORONARY ARTERY BYPASS
     Route: 048
  9. LASIX [Concomitant]
     Indication: DIURETIC THERAPY
     Route: 048
  10. LYRICA [Concomitant]
     Indication: PAIN
     Route: 048
  11. DICLOFENAC [Concomitant]
     Route: 048
  12. ZOCOR [Concomitant]
     Indication: BLOOD CHOLESTEROL ABNORMAL
     Route: 048
  13. TOPROL-XL [Concomitant]
     Indication: CARDIAC DISORDER
     Route: 048
  14. ALPHAGAN P [Concomitant]
     Indication: GLAUCOMA
     Dosage: ONE DROP EACH EYE TWICE DAILY
     Route: 047
  15. COUMADIN [Concomitant]
     Indication: ANTICOAGULANT THERAPY
     Route: 048
  16. COSOPT SOLUTION [Concomitant]
     Indication: GLAUCOMA
     Dosage: ONE DROP EACH EYE TWICE DAILY
     Route: 047

REACTIONS (2)
  - APPLICATION SITE ERYTHEMA [None]
  - CALCINOSIS [None]
